FAERS Safety Report 5198895-X (Version None)
Quarter: 2007Q1

REPORT INFORMATION
  Report Type: 
  Country: None (occurrence: None)
  Receive Date: 20070104
  Receipt Date: 20070102
  Transmission Date: 20070707
  Serious: Yes (Death, Hospitalization, Disabling)
  Sender: FDA-Public Use
  Company Number: PHRM2005FR00583

PATIENT
  Age: 74 Year
  Sex: Female
  Weight: 43 kg

DRUGS (3)
  1. ALKERAN [Concomitant]
     Indication: MULTIPLE MYELOMA
     Dosage: 5 DF 4 DAYS/MONTH
     Route: 048
     Dates: start: 20020715, end: 20040315
  2. ZOMETA [Suspect]
     Indication: MULTIPLE MYELOMA
     Dosage: 4 MG, UNK
     Route: 042
     Dates: start: 20020715, end: 20041215
  3. CORTANCYL [Concomitant]
     Dosage: 80 MG PER DAY/4 DAYS
     Route: 048
     Dates: start: 20020715, end: 20040315

REACTIONS (7)
  - ACUTE PULMONARY OEDEMA [None]
  - BONE EROSION [None]
  - CARDIAC FAILURE [None]
  - GINGIVITIS [None]
  - INFECTION [None]
  - OSTEONECROSIS [None]
  - TOOTH EXTRACTION [None]
